FAERS Safety Report 14625856 (Version 1)
Quarter: 2018Q1

REPORT INFORMATION
  Report Type: Spontaneous
  Country: SE (occurrence: SE)
  Receive Date: 20180312
  Receipt Date: 20180312
  Transmission Date: 20180509
  Serious: Yes (Life-Threatening, Hospitalization)
  Sender: FDA-Public Use
  Company Number: SE-ABBVIE-18P-150-2281464-00

PATIENT
  Sex: Female

DRUGS (2)
  1. VENCLYXTO [Suspect]
     Active Substance: VENETOCLAX
     Indication: WALDENSTROM^S MACROGLOBULINAEMIA
     Route: 048
     Dates: start: 20180115, end: 20180222
  2. PARACETAMOL [Concomitant]
     Active Substance: ACETAMINOPHEN
     Indication: PRODUCT USED FOR UNKNOWN INDICATION
     Dosage: AS NEEED

REACTIONS (6)
  - Off label use [Unknown]
  - Pyrexia [Unknown]
  - Influenza [Unknown]
  - Pancytopenia [Unknown]
  - Cough [Unknown]
  - C-reactive protein increased [Unknown]
